FAERS Safety Report 11267810 (Version 1)
Quarter: 2015Q3

REPORT INFORMATION
  Report Type: Spontaneous
  Country: US (occurrence: US)
  Receive Date: 20150713
  Receipt Date: 20150713
  Transmission Date: 20151125
  Serious: No
  Sender: FDA-Public Use
  Company Number: US-TAKEDA-2013MPI001348

PATIENT

DRUGS (1)
  1. VELCADE [Suspect]
     Active Substance: BORTEZOMIB
     Indication: PLASMA CELL MYELOMA
     Dosage: UNK, ON DAYS 1, 4, 8 AND 11 OF A 21-DAY CYCLE
     Route: 058
     Dates: start: 20130903, end: 20131204

REACTIONS (2)
  - Therapy change [Unknown]
  - No adverse event [Unknown]
